FAERS Safety Report 13985426 (Version 1)
Quarter: 2017Q3

REPORT INFORMATION
  Report Type: Spontaneous
  Country: US (occurrence: US)
  Receive Date: 20170918
  Receipt Date: 20170918
  Transmission Date: 20171128
  Serious: Yes (Death)
  Sender: FDA-Public Use
  Company Number: None

PATIENT

DRUGS (2)
  1. OMNISCAN [Suspect]
     Active Substance: GADODIAMIDE
     Route: 042
  2. MAGNEVIST [Suspect]
     Active Substance: GADOPENTETATE DIMEGLUMINE

REACTIONS (4)
  - Malaise [None]
  - Legal problem [None]
  - Fear [None]
  - Nervousness [None]

NARRATIVE: CASE EVENT DATE: 20060501
